FAERS Safety Report 9467711 (Version 1)
Quarter: 2013Q3

REPORT INFORMATION
  Report Type: Spontaneous
  Country: JP (occurrence: JP)
  Receive Date: 20130821
  Receipt Date: 20130821
  Transmission Date: 20140515
  Serious: Yes (Other)
  Sender: FDA-Public Use
  Company Number: JP-OTSUKA-JP-2013-13108

PATIENT
  Age: 30 Year
  Sex: 0

DRUGS (6)
  1. SAMSCA [Suspect]
     Indication: CARDIAC FAILURE
     Dosage: 7.5 MG MILLIGRAM(S), DAILY DOSE
     Route: 048
     Dates: start: 20130805, end: 20130807
  2. SAMSCA [Suspect]
     Dosage: 15 MG MILLIGRAM(S), DAILY DOSE
     Route: 048
     Dates: start: 20130808
  3. DOBUTREX [Suspect]
     Route: 041
  4. DOBUTREX [Suspect]
     Dosage: UNK
     Route: 041
     Dates: end: 20130812
  5. LASIX [Concomitant]
     Dosage: 80 MG MILLIGRAM(S), DAILY DOSE
     Route: 065
  6. ALDACTONE [Concomitant]
     Dosage: 50 MG MILLIGRAM(S), DAILY DOSE
     Route: 048

REACTIONS (1)
  - Blood creatinine increased [Unknown]
